FAERS Safety Report 5370611-8 (Version None)
Quarter: 2007Q2

REPORT INFORMATION
  Report Type: 
  Country: None (occurrence: None)
  Receive Date: 20070626
  Receipt Date: 20070622
  Transmission Date: 20071010
  Serious: Yes (Other)
  Sender: FDA-Public Use
  Company Number: NL-ASTRAZENECA-2007AC01150

PATIENT
  Age: 12960 Day
  Sex: Male
  Weight: 92 kg

DRUGS (2)
  1. NEXIUM [Suspect]
     Indication: GASTROOESOPHAGEAL REFLUX DISEASE
     Route: 048
     Dates: start: 20060501, end: 20070401
  2. SUCRALFAAT SANDOZ SUSPENSIE [Concomitant]
     Dosage: 200 MG/ML IN ZAKJE 5ML
     Dates: start: 20060801

REACTIONS (3)
  - GASTROINTESTINAL MOTILITY DISORDER [None]
  - GYNAECOMASTIA [None]
  - LYMPHADENOPATHY [None]
